FAERS Safety Report 10108850 (Version 2)
Quarter: 2014Q2

REPORT INFORMATION
  Report Type: Spontaneous
  Country: US (occurrence: US)
  Receive Date: 20140425
  Receipt Date: 20140502
  Transmission Date: 20141212
  Serious: Yes (Other)
  Sender: FDA-Public Use
  Company Number: US-AMGEN-USASP2014029315

PATIENT
  Age: 69 Year
  Sex: Female

DRUGS (4)
  1. PROLIA [Suspect]
     Indication: OSTEOPOROSIS POSTMENOPAUSAL
     Dosage: UNK
     Route: 065
  2. ESTRADIOL                          /00045402/ [Concomitant]
  3. PROGESTERONE [Concomitant]
  4. BUPROPION [Concomitant]

REACTIONS (5)
  - Surgery [Unknown]
  - Rosacea [Unknown]
  - Telangiectasia [Unknown]
  - Acne [Unknown]
  - Alopecia [Not Recovered/Not Resolved]
